FAERS Safety Report 4453486-0 (Version None)
Quarter: 2004Q3

REPORT INFORMATION
  Report Type: 
  Country: None (occurrence: None)
  Receive Date: 20040901
  Receipt Date: 20040506
  Transmission Date: 20050211
  Serious: Yes (Disabling)
  Sender: FDA-Public Use
  Company Number: US077083

PATIENT
  Age: 52 Year
  Sex: Female
  Weight: 74.5 kg

DRUGS (1)
  1. ENBREL [Suspect]
     Indication: RHEUMATOID ARTHRITIS
     Dosage: SC
     Route: 058
     Dates: start: 20000101, end: 20040201

REACTIONS (1)
  - INTERSTITIAL LUNG DISEASE [None]
